FAERS Safety Report 15226450 (Version 1)
Quarter: 2018Q3

REPORT INFORMATION
  Report Type: Spontaneous
  Country: FR (occurrence: FR)
  Receive Date: 20180801
  Receipt Date: 20180801
  Transmission Date: 20181010
  Serious: Yes (Hospitalization, Other)
  Sender: FDA-Public Use
  Company Number: FR-SA-2018SA199899

PATIENT
  Age: 77 Year
  Sex: Female
  Weight: 103 kg

DRUGS (12)
  1. SERESTA [Suspect]
     Active Substance: OXAZEPAM
     Indication: ANXIETY
     Dosage: 10 MG, QD
     Route: 048
  2. ZOLPIDEM TARTRATE. [Suspect]
     Active Substance: ZOLPIDEM TARTRATE
     Indication: INSOMNIA
     Dosage: 10 MG, QD
     Route: 048
  3. DUROGESIC [Suspect]
     Active Substance: FENTANYL
     Indication: PAIN
     Dosage: 5 DF, QD
     Route: 062
  4. LASILIX [FUROSEMIDE] [Concomitant]
  5. IMPORTAL [Concomitant]
     Active Substance: LACTITOL
  6. AMLOR [Concomitant]
     Active Substance: AMLODIPINE BESYLATE
  7. TRIATEC [RAMIPRIL] [Concomitant]
  8. ZYLORIC [Concomitant]
     Active Substance: ALLOPURINOL
  9. OXYNORM [Suspect]
     Active Substance: OXYCODONE HYDROCHLORIDE
     Indication: PAIN
     Dosage: 5 MG, UNK
     Route: 048
  10. SIMVASTATINE [Concomitant]
     Active Substance: SIMVASTATIN
  11. PREVISCAN [FLUINDIONE] [Concomitant]
     Active Substance: FLUINDIONE
  12. DOLIPRANE [Concomitant]
     Active Substance: ACETAMINOPHEN

REACTIONS (4)
  - Confusional state [Recovered/Resolved]
  - Fall [Recovered/Resolved]
  - Miosis [Recovered/Resolved]
  - Bradycardia [Recovered/Resolved]

NARRATIVE: CASE EVENT DATE: 20150118
